FAERS Safety Report 15387711 (Version 1)
Quarter: 2018Q3

REPORT INFORMATION
  Report Type: Report from Study
  Country: FR (occurrence: FR)
  Receive Date: 20180914
  Receipt Date: 20180914
  Transmission Date: 20181010
  Serious: Yes (Hospitalization)
  Sender: FDA-Public Use
  Company Number: FR-PFIZER INC-2018369563

PATIENT
  Age: 51 Year
  Sex: Male
  Weight: 68 kg

DRUGS (2)
  1. ATGAM [Suspect]
     Active Substance: EQUINE THYMOCYTE IMMUNE GLOBULIN
     Dosage: UNK
     Dates: start: 20160127, end: 20160131
  2. CICLOSPORIN [Concomitant]
     Active Substance: CYCLOSPORINE

REACTIONS (2)
  - Pseudomonas infection [Recovered/Resolved]
  - Cytokine release syndrome [Recovered/Resolved]

NARRATIVE: CASE EVENT DATE: 20160127
